FAERS Safety Report 25576381 (Version 2)
Quarter: 2025Q3

REPORT INFORMATION
  Report Type: Report from Study
  Country: US (occurrence: US)
  Receive Date: 20250718
  Receipt Date: 20250815
  Transmission Date: 20251020
  Serious: Yes (Other)
  Sender: SUNOVION
  Company Number: US-SMPA-2025SPA008996

PATIENT
  Age: 82 Year
  Sex: Male

DRUGS (11)
  1. ORGOVYX [Suspect]
     Active Substance: RELUGOLIX
     Indication: Prostate cancer
     Route: 048
  2. ORGOVYX [Suspect]
     Active Substance: RELUGOLIX
     Route: 048
  3. ALCOHOL [Suspect]
     Active Substance: ALCOHOL
     Indication: Product used for unknown indication
  4. BISACODYL [Concomitant]
     Active Substance: BISACODYL
  5. DOXYLAMINE [Concomitant]
     Active Substance: DOXYLAMINE
  6. ERLEADA [Concomitant]
     Active Substance: APALUTAMIDE
  7. Goodsense cold relief zinc [Concomitant]
  8. IBUPROFEN [Concomitant]
     Active Substance: IBUPROFEN
  9. ROPINIROLE [Concomitant]
     Active Substance: ROPINIROLE
  10. VALSARTAN [Concomitant]
     Active Substance: VALSARTAN
     Route: 048
  11. MEGESTROL [Concomitant]
     Active Substance: MEGESTROL

REACTIONS (8)
  - Metastases to bone [Unknown]
  - Erectile dysfunction [Unknown]
  - Lip swelling [Unknown]
  - Dry mouth [Unknown]
  - Arthralgia [Unknown]
  - Hot flush [Recovered/Resolved]
  - Fatigue [Unknown]
  - Product dose omission issue [Recovered/Resolved]
